FAERS Safety Report 23075140 (Version 5)
Quarter: 2023Q4

REPORT INFORMATION
  Report Type: Spontaneous
  Country: CA (occurrence: CA)
  Receive Date: 20231017
  Receipt Date: 20231204
  Transmission Date: 20240110
  Serious: Yes (Other)
  Sender: FDA-Public Use
  Company Number: CA-PFIZER INC-PV202300150994

PATIENT
  Age: 33 Year
  Sex: Female
  Weight: 66.8 kg

DRUGS (14)
  1. ZIRABEV [Suspect]
     Active Substance: BEVACIZUMAB-BVZR
     Indication: Glioblastoma
     Dosage: 10 MG/KG, EVERY 2 WEEKS REPEATS 8
     Route: 042
  2. ZIRABEV [Suspect]
     Active Substance: BEVACIZUMAB-BVZR
     Indication: Astrocytoma
     Dosage: 10 MG/KG, EVERY 2 WEEKS REPEATS 10
     Route: 042
  3. ZIRABEV [Suspect]
     Active Substance: BEVACIZUMAB-BVZR
     Dosage: 680 MG, EVERY 2 WEEKS
     Route: 042
     Dates: start: 20230912
  4. ZIRABEV [Suspect]
     Active Substance: BEVACIZUMAB-BVZR
     Dosage: 680 MG, EVERY 2 WEEKS
     Route: 042
     Dates: start: 20230912
  5. ZIRABEV [Suspect]
     Active Substance: BEVACIZUMAB-BVZR
     Dosage: 680 MG, EVERY 2 WEEKS
     Route: 042
     Dates: start: 20230926
  6. ZIRABEV [Suspect]
     Active Substance: BEVACIZUMAB-BVZR
     Dosage: 680 MG, EVERY 2 WEEKS
     Route: 042
     Dates: start: 20230926
  7. ZIRABEV [Suspect]
     Active Substance: BEVACIZUMAB-BVZR
     Dosage: 680 MG, EVERY 2 WEEKS
     Route: 042
     Dates: start: 20231010
  8. ZIRABEV [Suspect]
     Active Substance: BEVACIZUMAB-BVZR
     Dosage: 680 MG, EVERY 2 WEEKS
     Route: 042
     Dates: start: 20231010
  9. ZIRABEV [Suspect]
     Active Substance: BEVACIZUMAB-BVZR
     Dosage: 680 MG, EVERY 2 WEEKS
     Route: 042
     Dates: start: 20231010
  10. ZIRABEV [Suspect]
     Active Substance: BEVACIZUMAB-BVZR
     Dosage: 680 MG, EVERY 2 WEEKS
     Route: 042
     Dates: start: 20231024
  11. ZIRABEV [Suspect]
     Active Substance: BEVACIZUMAB-BVZR
     Dosage: 680 MG, EVERY 2 WEEKS
     Route: 042
     Dates: start: 20231024
  12. ZIRABEV [Suspect]
     Active Substance: BEVACIZUMAB-BVZR
     Dosage: 680 MG
     Route: 042
     Dates: start: 20231107
  13. ZIRABEV [Suspect]
     Active Substance: BEVACIZUMAB-BVZR
     Dosage: 680 MG
     Route: 042
     Dates: start: 20231107
  14. TYLENOL [Concomitant]
     Active Substance: ACETAMINOPHEN
     Indication: Premedication
     Dosage: UNK
     Dates: start: 20230926, end: 20230926

REACTIONS (7)
  - Central venous catheterisation [Unknown]
  - Gait inability [Unknown]
  - Mobility decreased [Not Recovered/Not Resolved]
  - Poor venous access [Unknown]
  - Weight increased [Unknown]
  - Asthenia [Not Recovered/Not Resolved]
  - Wheelchair user [Unknown]

NARRATIVE: CASE EVENT DATE: 20230101
